FAERS Safety Report 24291444 (Version 1)
Quarter: 2024Q3

REPORT INFORMATION
  Report Type: Spontaneous
  Country: US (occurrence: None)
  Receive Date: 20240906
  Receipt Date: 20240906
  Transmission Date: 20241017
  Serious: No
  Sender: DOMPE FARMACEUTICI
  Company Number: US-FARMAPROD-202308-202309-2672

PATIENT
  Sex: Female
  Weight: 91.72 kg

DRUGS (9)
  1. OXERVATE [Suspect]
     Active Substance: CENEGERMIN-BKBJ
     Indication: Neurotrophic keratopathy
     Route: 047
     Dates: start: 202307, end: 202307
  2. ATORVASTATIN CALCIUM [Concomitant]
     Active Substance: ATORVASTATIN CALCIUM
  3. LEVEMIR [Concomitant]
     Active Substance: INSULIN DETEMIR
     Dosage: FLEXTOUCH 100/ML, INSULIN PEN
  4. VENTOLIN HFA [Concomitant]
     Active Substance: ALBUTEROL SULFATE
     Dosage: AEROSOL WITH ADAPTER.
  5. ACTOS [Concomitant]
     Active Substance: PIOGLITAZONE HYDROCHLORIDE
  6. METFORMIN HYDROCHLORIDE [Concomitant]
     Active Substance: METFORMIN HYDROCHLORIDE
  7. PREDNISOLONE ACETATE [Concomitant]
     Active Substance: PREDNISOLONE ACETATE
     Route: 047
  8. POLYMYXIN [Concomitant]
     Active Substance: POLYMYXIN
     Route: 047
  9. GATIFLOXACIN [Concomitant]
     Active Substance: GATIFLOXACIN
     Route: 047

REACTIONS (1)
  - Therapy interrupted [Not Recovered/Not Resolved]
